FAERS Safety Report 4775727-2 (Version None)
Quarter: 2005Q3

REPORT INFORMATION
  Report Type: 
  Country: None (occurrence: None)
  Receive Date: 20050920
  Receipt Date: 20050920
  Transmission Date: 20060218
  Serious: Yes (Disabling, Other)
  Sender: FDA-Public Use
  Company Number: None

PATIENT
  Sex: Female
  Weight: 68.0396 kg

DRUGS (1)
  1. ARIMIDEX [Suspect]
     Indication: MALIGNANT BREAST LUMP REMOVAL
     Dosage: 1 PILL DAILY PO
     Route: 048

REACTIONS (2)
  - BONE DENSITY DECREASED [None]
  - TOOTH EXTRACTION [None]
